FAERS Safety Report 21303146 (Version 4)
Quarter: 2023Q2

REPORT INFORMATION
  Report Type: Report from Study
  Country: CA (occurrence: CA)
  Receive Date: 20220907
  Receipt Date: 20230518
  Transmission Date: 20230721
  Serious: Yes (Other)
  Sender: FDA-Public Use
  Company Number: CA-KOREA IPSEN Pharma-2022-23037

PATIENT
  Age: 87 Year
  Sex: Male

DRUGS (13)
  1. LANREOTIDE ACETATE [Suspect]
     Active Substance: LANREOTIDE ACETATE
     Indication: Carcinoid syndrome
     Route: 058
     Dates: start: 20220715, end: 2022
  2. LANREOTIDE ACETATE [Suspect]
     Active Substance: LANREOTIDE ACETATE
     Route: 058
     Dates: start: 2022
  3. PREDNISONE [Concomitant]
     Active Substance: PREDNISONE
  4. EPREX ALPHA [Concomitant]
     Dosage: 20000 U/0.5ML INJECTIONS
  5. FOLIC ACID [Concomitant]
     Active Substance: FOLIC ACID
     Dosage: 6 DAYS/ WEEK EXCEPT FRIDAY
  6. METHOTREXATE [Concomitant]
     Active Substance: METHOTREXATE
     Dosage: FRIDAY
  7. ESOMEPRAZOLE [Concomitant]
     Active Substance: ESOMEPRAZOLE
  8. COTAZYM ECS [Concomitant]
     Dosage: 20-25000 USP UNT 3 TABS
  9. CHLORTHALIDONE [Concomitant]
     Active Substance: CHLORTHALIDONE
  10. LORAZEPAM [Concomitant]
     Active Substance: LORAZEPAM
     Dosage: 1 MG BED TIME
  11. LORAZEPAM [Concomitant]
     Active Substance: LORAZEPAM
     Dosage: PRN
  12. MELATONIN [Concomitant]
     Active Substance: MELATONIN
     Dosage: AT BED TIME
  13. BETADERM CREAM [Concomitant]
     Dosage: PRN

REACTIONS (17)
  - Disease progression [Recovered/Resolved]
  - General physical health deterioration [Not Recovered/Not Resolved]
  - Urinary tract infection [Unknown]
  - Palliative care [Unknown]
  - Asthenia [Unknown]
  - Hypersomnia [Not Recovered/Not Resolved]
  - Fatigue [Unknown]
  - Diarrhoea [Unknown]
  - Flushing [Unknown]
  - Decreased appetite [Unknown]
  - Hyperhidrosis [Not Recovered/Not Resolved]
  - Abdominal pain lower [Unknown]
  - Myalgia [Unknown]
  - Faeces soft [Unknown]
  - Off label use [Unknown]
  - Drug ineffective [Unknown]
  - Drug ineffective [Unknown]

NARRATIVE: CASE EVENT DATE: 20220101
